FAERS Safety Report 4843603-2 (Version None)
Quarter: 2005Q4

REPORT INFORMATION
  Report Type: 
  Country: None (occurrence: None)
  Receive Date: 20051125
  Receipt Date: 20051108
  Transmission Date: 20060501
  Serious: Yes (Death, Hospitalization, Other)
  Sender: FDA-Public Use
  Company Number: USA0508105094

PATIENT
  Age: 67 Year
  Sex: Male

DRUGS (23)
  1. GEMZAR [Suspect]
     Indication: PANCREATIC CARCINOMA METASTATIC
     Dosage: 1000 MG
     Dates: start: 20041005, end: 20041109
  2. COUMADIN [Concomitant]
  3. LOVENOX [Concomitant]
  4. ZOLOFT [Concomitant]
  5. DURAGESIC-100 [Concomitant]
  6. MORPHINE [Concomitant]
  7. LOMOTIL [Concomitant]
  8. ZOFRAN [Concomitant]
  9. COLACE (DOCUSATE SODIUM) [Concomitant]
  10. RITALIN [Concomitant]
  11. BACLOFEN [Concomitant]
  12. REGLAN [Concomitant]
  13. ULTRAM [Concomitant]
  14. PREVACID [Concomitant]
  15. DECADRON [Concomitant]
  16. PHENERGAN (PROMETHAZINE HYDROCHLORIDE) [Concomitant]
  17. MORPHINE [Concomitant]
  18. SENOKOT [Concomitant]
  19. MIRALAX [Concomitant]
  20. KYTRIL [Concomitant]
  21. ZYPREXA [Concomitant]
  22. METOPROLOL (METOPROLOL) [Concomitant]
  23. PREDNISONE [Concomitant]

REACTIONS (50)
  - ABDOMINAL PAIN UPPER [None]
  - ALANINE AMINOTRANSFERASE INCREASED [None]
  - ASPARTATE AMINOTRANSFERASE INCREASED [None]
  - BLOOD BILIRUBIN INCREASED [None]
  - CELLULITIS [None]
  - CHEST PAIN [None]
  - CHILLS [None]
  - CONFUSIONAL STATE [None]
  - CONSTIPATION [None]
  - COUGH [None]
  - DEEP VEIN THROMBOSIS [None]
  - DEHYDRATION [None]
  - DIARRHOEA [None]
  - DRUG INEFFECTIVE [None]
  - DRUG TOXICITY [None]
  - DYSPNOEA [None]
  - DYSPNOEA EXERTIONAL [None]
  - ENCEPHALOPATHY [None]
  - EPIGASTRIC DISCOMFORT [None]
  - HAEMOGLOBIN DECREASED [None]
  - HYPONATRAEMIA [None]
  - HYPOXIA [None]
  - INFECTION [None]
  - INFUSION RELATED REACTION [None]
  - INTERNATIONAL NORMALISED RATIO INCREASED [None]
  - INTERSTITIAL LUNG DISEASE [None]
  - LIVER FUNCTION TEST ABNORMAL [None]
  - LOSS OF CONSCIOUSNESS [None]
  - LUNG CONSOLIDATION [None]
  - MALIGNANT NEOPLASM PROGRESSION [None]
  - MENTAL STATUS CHANGES [None]
  - METABOLIC ALKALOSIS [None]
  - METASTASES TO LUNG [None]
  - NAUSEA [None]
  - NEUROPATHY [None]
  - OEDEMA PERIPHERAL [None]
  - OVERDOSE [None]
  - PAIN [None]
  - PLATELET COUNT DECREASED [None]
  - PLEURAL EFFUSION [None]
  - PNEUMONITIS [None]
  - PNEUMOTHORAX [None]
  - PULMONARY FIBROSIS [None]
  - PYREXIA [None]
  - RESPIRATORY ALKALOSIS [None]
  - SKIN WARM [None]
  - SYNCOPE [None]
  - TENDERNESS [None]
  - VOMITING [None]
  - WEIGHT DECREASED [None]
